FAERS Safety Report 5489874-3 (Version None)
Quarter: 2007Q4

REPORT INFORMATION
  Report Type: 
  Country: None (occurrence: None)
  Receive Date: 20071018
  Receipt Date: 20071015
  Transmission Date: 20080405
  Serious: Yes (Other)
  Sender: FDA-Public Use
  Company Number: US-GENENTECH-247637

PATIENT
  Sex: Female
  Weight: 70.748 kg

DRUGS (5)
  1. LUCENTIS [Suspect]
     Indication: MACULAR DEGENERATION
     Route: 031
     Dates: start: 20061201
  2. PRINIVIL [Concomitant]
     Indication: DRUG USE FOR UNKNOWN INDICATION
     Dosage: 2.5 MG, QD
  3. ESTROGEN [Concomitant]
     Indication: DRUG USE FOR UNKNOWN INDICATION
  4. MOTRIN [Concomitant]
     Indication: ARTHRALGIA
     Dosage: UNK, PRN
  5. COMPAZINE [Concomitant]
     Indication: DRUG USE FOR UNKNOWN INDICATION

REACTIONS (2)
  - BREAST CANCER IN SITU [None]
  - VITREOUS FLOATERS [None]
